APPROVED DRUG PRODUCT: CETRAXAL
Active Ingredient: CIPROFLOXACIN HYDROCHLORIDE
Strength: EQ 0.2% BASE
Dosage Form/Route: SOLUTION/DROPS;OTIC
Application: N021918 | Product #001 | TE Code: AB
Applicant: LABORATORIOS SALVAT SA
Approved: May 1, 2009 | RLD: Yes | RS: Yes | Type: RX